FAERS Safety Report 15545061 (Version 1)
Quarter: 2018Q4

REPORT INFORMATION
  Report Type: Other
  Country: IT (occurrence: IT)
  Receive Date: 20181024
  Receipt Date: 20181024
  Transmission Date: 20190205
  Serious: Yes (Hospitalization, Other)
  Sender: FDA-Public Use
  Company Number: IT-APOTEX-2018AP023201

PATIENT
  Age: 48 Year
  Sex: Female

DRUGS (2)
  1. LEXOTAN [Suspect]
     Active Substance: BROMAZEPAM
     Indication: DRUG ABUSE
     Dosage: 1 DF, IN TOTAL
     Route: 048
     Dates: start: 20180614, end: 20180614
  2. CLARITHROMYCIN. [Suspect]
     Active Substance: CLARITHROMYCIN
     Indication: DRUG ABUSE
     Dosage: 2.5 G, IN TOTAL
     Route: 048
     Dates: start: 20180614, end: 20180614

REACTIONS (4)
  - Dry mouth [Recovering/Resolving]
  - Palpitations [Recovering/Resolving]
  - Intentional self-injury [Recovering/Resolving]
  - Sopor [Recovering/Resolving]

NARRATIVE: CASE EVENT DATE: 20180614
